FAERS Safety Report 8757972 (Version 1)
Quarter: 2012Q4

REPORT INFORMATION
  Report Type: 
  Country: US (occurrence: US)
  Receive Date: 20120828
  Receipt Date: 20120828
  Transmission Date: 20130627
  Serious: No
  Sender: FDA-Public Use
  Company Number: US-PFIZER INC-2012209368

PATIENT
  Age: 25 Year

DRUGS (4)
  1. EFFEXOR XR [Suspect]
     Dosage: 75 mg, 1x/day
  2. ELAVIL [Concomitant]
     Dosage: UNK
  3. ASCORBIC ACID [Concomitant]
     Dosage: UNK
  4. NICOTROL [Concomitant]
     Dosage: UNK

REACTIONS (1)
  - Migraine [Unknown]
